FAERS Safety Report 6461938-7 (Version None)
Quarter: 2009Q4

REPORT INFORMATION
  Report Type: 
  Country: None (occurrence: None)
  Receive Date: 20091024
  Receipt Date: 20091026
  Transmission Date: 20100525
  Serious: Yes (Death, Hospitalization)
  Sender: FDA-Public Use
  Company Number: 2009AC000039

PATIENT
  Age: 56 Year
  Sex: Male
  Weight: 147.419 kg

DRUGS (55)
  1. DIGOXIN [Suspect]
     Indication: ATRIAL FIBRILLATION
     Dosage: 0.125 MG; QD; PO
     Route: 048
     Dates: start: 20050801
  2. RELION [Concomitant]
  3. ALLOPURINOL [Concomitant]
  4. ALTACE [Concomitant]
  5. PACERONE [Concomitant]
  6. PROTONIX [Concomitant]
  7. AMITRYPTYLIN [Concomitant]
  8. SULFAMETHOXAZOLE AND TRIMETHOPRIM [Concomitant]
  9. KETOCONAZOLE [Concomitant]
  10. ZOCOR [Concomitant]
  11. CARISPRODOL [Concomitant]
  12. STAGESIC [Concomitant]
  13. COREG [Concomitant]
  14. ALBUTEROL [Concomitant]
  15. FUROSEMIDE [Concomitant]
  16. PLAVIX [Concomitant]
  17. SILVER SULFADIAZINE [Concomitant]
  18. AUGMENTIN [Concomitant]
  19. SIMVASTATIN [Concomitant]
  20. TUSDEC-DM [Concomitant]
  21. CYCLOBENZAPRINE [Concomitant]
  22. METOLAZONE [Concomitant]
  23. TRAMADOL HCL [Concomitant]
  24. CEPHALEXIN [Concomitant]
  25. LOVASTATIN [Concomitant]
  26. CIPROFLOXACIN HCL [Concomitant]
  27. SPIRONOLACTONE [Concomitant]
  28. FOSINOPRIL SODIUM [Concomitant]
  29. CARVEDILOL [Concomitant]
  30. NITROGLYCERIN [Concomitant]
  31. DALTEPARIN SODIUM [Concomitant]
  32. ASPIRIN [Concomitant]
  33. LIPITOR [Concomitant]
  34. CLOPIDOGREL [Concomitant]
  35. MONOPRIL [Concomitant]
  36. SODIUM CHLORIDE [Concomitant]
  37. BUMEX [Concomitant]
  38. MAALOX [Concomitant]
  39. FENTANY [Concomitant]
  40. MIDAZOLAM HCL [Concomitant]
  41. NYSTATIN [Concomitant]
  42. NOVOLIN [Concomitant]
  43. LORTAB [Concomitant]
  44. CORDARONE [Concomitant]
  45. PROTONIX [Concomitant]
  46. COREG [Concomitant]
  47. AMITRIPTYLINE [Concomitant]
  48. BEXTRA [Concomitant]
  49. ACCUPRIL [Concomitant]
  50. TRAMADOL HCL [Concomitant]
  51. GLIPIZIDE [Concomitant]
  52. COMBIVENT [Concomitant]
  53. ALTACE [Concomitant]
  54. PROTONIX [Concomitant]
  55. ALLOPURINOL [Concomitant]

REACTIONS (56)
  - ABDOMINAL PAIN UPPER [None]
  - ANAEMIA [None]
  - ANGINA PECTORIS [None]
  - ANHEDONIA [None]
  - ANXIETY [None]
  - AORTIC VALVE DISEASE [None]
  - AORTIC VALVE INCOMPETENCE [None]
  - ARTERIOSCLEROSIS CORONARY ARTERY [None]
  - ARTHRALGIA [None]
  - ATRIAL FIBRILLATION [None]
  - BRONCHITIS [None]
  - CARDIAC FAILURE CONGESTIVE [None]
  - CARDIOMYOPATHY [None]
  - CELLULITIS [None]
  - CHRONIC OBSTRUCTIVE PULMONARY DISEASE [None]
  - CONFUSIONAL STATE [None]
  - COR PULMONALE [None]
  - CORONARY ARTERY DISEASE [None]
  - COUGH [None]
  - DIABETES MELLITUS [None]
  - DIABETIC NEUROPATHY [None]
  - DYSPEPSIA [None]
  - DYSPNOEA EXERTIONAL [None]
  - ERYTHEMA [None]
  - EXCORIATION [None]
  - FALL [None]
  - FOOT AMPUTATION [None]
  - GANGRENE [None]
  - HAEMORRHOIDS [None]
  - HYPOACUSIS [None]
  - IMPAIRED HEALING [None]
  - IMPETIGO [None]
  - INJURY [None]
  - INSOMNIA [None]
  - LEFT VENTRICULAR HYPERTROPHY [None]
  - LEG AMPUTATION [None]
  - MALNUTRITION [None]
  - MENTAL STATUS CHANGES [None]
  - MUSCULOSKELETAL CHEST PAIN [None]
  - NECROSIS [None]
  - OEDEMA [None]
  - PAIN [None]
  - PERIPHERAL VASCULAR DISORDER [None]
  - POST PROCEDURAL COMPLICATION [None]
  - PULMONARY HYPERTENSION [None]
  - PYREXIA [None]
  - RENAL FAILURE ACUTE [None]
  - RENAL FAILURE CHRONIC [None]
  - SINUS BRADYCARDIA [None]
  - SINUS DISORDER [None]
  - SKIN ULCER [None]
  - SLEEP APNOEA SYNDROME [None]
  - SUPRAVENTRICULAR TACHYCARDIA [None]
  - WEIGHT DECREASED [None]
  - WHEEZING [None]
  - WOUND INFECTION [None]
